FAERS Safety Report 4466355-7 (Version None)
Quarter: 2004Q4

REPORT INFORMATION
  Report Type: 
  Country: None (occurrence: None)
  Receive Date: 20041005
  Receipt Date: 20040924
  Transmission Date: 20050328
  Serious: Yes (Hospitalization)
  Sender: FDA-Public Use
  Company Number: PHNU2004DE03348

PATIENT
  Age: 50 Year
  Sex: Male

DRUGS (3)
  1. SANDIMMUNE [Suspect]
     Indication: RENAL TRANSPLANT
     Route: 048
  2. CELLCEPT [Concomitant]
     Indication: RENAL TRANSPLANT
  3. URBASON [Concomitant]
     Indication: RENAL TRANSPLANT

REACTIONS (3)
  - FALL [None]
  - MUSCULAR WEAKNESS [None]
  - NEUROMYOPATHY [None]
